FAERS Safety Report 4633590-4 (Version None)
Quarter: 2005Q2

REPORT INFORMATION
  Report Type: 
  Country: None (occurrence: None)
  Receive Date: 20050412
  Receipt Date: 20050412
  Transmission Date: 20051028
  Serious: Yes (Hospitalization)
  Sender: FDA-Public Use
  Company Number: None

PATIENT
  Sex: Male
  Weight: 110.6 kg

DRUGS (1)
  1. TI-201 THALLOUS CHLORIDE [Suspect]

REACTIONS (1)
  - FEELING HOT [None]
